FAERS Safety Report 6565484-1 (Version None)
Quarter: 2010Q1

REPORT INFORMATION
  Report Type: 
  Country: None (occurrence: None)
  Receive Date: 20100201
  Receipt Date: 20100126
  Transmission Date: 20100710
  Serious: Yes (Other)
  Sender: FDA-Public Use
  Company Number: US-GILEAD-2009-0025719

PATIENT
  Age: 30 Year
  Sex: Female

DRUGS (5)
  1. TRUVADA [Suspect]
     Indication: HIV INFECTION
     Route: 048
     Dates: start: 20090908
  2. KALETRA [Concomitant]
     Indication: HIV INFECTION
     Dates: start: 20090901, end: 20090908
  3. COMBIVIR [Concomitant]
     Indication: HIV INFECTION
     Dates: start: 20090901, end: 20090908
  4. REYATAZ [Concomitant]
     Indication: HIV INFECTION
     Dates: start: 20090908
  5. NORVIR [Concomitant]
     Indication: HIV INFECTION
     Dates: start: 20090908

REACTIONS (1)
  - STILLBIRTH [None]
